FAERS Safety Report 21460014 (Version 4)
Quarter: 2023Q2

REPORT INFORMATION
  Report Type: Spontaneous
  Country: US (occurrence: US)
  Receive Date: 20221014
  Receipt Date: 20230525
  Transmission Date: 20230721
  Serious: Yes (Hospitalization, Other)
  Sender: FDA-Public Use
  Company Number: US-PFIZER INC-PV202200082212

PATIENT
  Age: 76 Year
  Sex: Female

DRUGS (2)
  1. XELJANZ [Suspect]
     Active Substance: TOFACITINIB CITRATE
     Indication: Rheumatoid arthritis
     Dosage: 5 MG, 2X/DAY
     Route: 048
     Dates: start: 2015
  2. XELJANZ [Suspect]
     Active Substance: TOFACITINIB CITRATE
     Dosage: 5 MG, 1X/DAY
     Route: 048
     Dates: start: 2022

REACTIONS (29)
  - Dyspnoea [Unknown]
  - Full blood count decreased [Unknown]
  - Spinal fracture [Unknown]
  - Fall [Unknown]
  - Renal failure [Unknown]
  - Renal impairment [Unknown]
  - Gait disturbance [Unknown]
  - Dysstasia [Unknown]
  - Gastric ulcer haemorrhage [Unknown]
  - Rheumatoid arthritis [Unknown]
  - Sensitivity to weather change [Unknown]
  - Hiatus hernia [Unknown]
  - Vein disorder [Unknown]
  - Pelvic fracture [Unknown]
  - Femur fracture [Unknown]
  - Wrist fracture [Unknown]
  - Ankle fracture [Unknown]
  - Shoulder arthroplasty [Unknown]
  - Arthropathy [Unknown]
  - Haemoglobin decreased [Unknown]
  - Ulcer haemorrhage [Unknown]
  - Intervertebral disc disorder [Unknown]
  - Hepatic function abnormal [Unknown]
  - Hypersomnia [Unknown]
  - Fatigue [Unknown]
  - Gastric disorder [Unknown]
  - Oesophageal irritation [Unknown]
  - Illness [Unknown]
  - Product dose omission issue [Unknown]

NARRATIVE: CASE EVENT DATE: 20220901
